FAERS Safety Report 5041014-0 (Version None)
Quarter: 2006Q3

REPORT INFORMATION
  Report Type: 
  Country: None (occurrence: None)
  Receive Date: 20060703
  Receipt Date: 20060404
  Transmission Date: 20061208
  Serious: No
  Sender: FDA-Public Use
  Company Number: US-GLAXOSMITHKLINE-A0600324A

PATIENT
  Age: 70 Year
  Sex: Male

DRUGS (3)
  1. PARNATE [Suspect]
     Indication: DEPRESSION
     Dosage: 15MG THREE TIMES PER DAY
     Route: 048
  2. KLONOPIN [Concomitant]
  3. QUININE SULFATE [Concomitant]

REACTIONS (1)
  - MUSCLE SPASMS [None]
